FAERS Safety Report 7731875-6 (Version None)
Quarter: 2011Q3

REPORT INFORMATION
  Report Type: 
  Country: None (occurrence: None)
  Receive Date: 20110906
  Receipt Date: 20110712
  Transmission Date: 20111222
  Serious: No
  Sender: FDA-Public Use
  Company Number: US-AMGEN-USASP2011035317

PATIENT
  Age: 90 Year
  Sex: Female

DRUGS (6)
  1. VITAMIN E                          /00110501/ [Concomitant]
  2. CENTRUM SILVER                     /01292501/ [Concomitant]
  3. CALCIUM WITH VITAMIN D             /00944201/ [Concomitant]
     Dosage: 1 MG, QD
  4. PROLIA [Suspect]
     Indication: OSTEOPOROSIS POSTMENOPAUSAL
     Dosage: 60 MG, Q6MO
     Dates: start: 20101201
  5. VITAMIN D [Concomitant]
     Dosage: 2 IU, QD
  6. MELOXICAM [Concomitant]
     Indication: BACK PAIN
     Dosage: 2 MG, QD

REACTIONS (2)
  - LETHARGY [None]
  - ASTHENIA [None]
